FAERS Safety Report 4882351-X (Version None)
Quarter: 2005Q4

REPORT INFORMATION
  Report Type: 
  Country: None (occurrence: None)
  Receive Date: 20051201
  Receipt Date: 20050726
  Transmission Date: 20060501
  Serious: No
  Sender: FDA-Public Use
  Company Number: 2005PV000594

PATIENT
  Age: 57 Year
  Sex: Male
  Weight: 107.0489 kg

DRUGS (5)
  1. BYETTA [Suspect]
     Indication: DIABETES MELLITUS NON-INSULIN-DEPENDENT
     Dosage: 5 MCG;BID;SC
     Route: 058
     Dates: start: 20050716
  2. LIPITOR [Concomitant]
  3. LOPID [Concomitant]
  4. AVALIDE [Concomitant]
  5. ACTOS [Concomitant]

REACTIONS (1)
  - INJECTION SITE HAEMORRHAGE [None]
